FAERS Safety Report 7543339-3 (Version None)
Quarter: 2011Q2

REPORT INFORMATION
  Report Type: 
  Country: None (occurrence: None)
  Receive Date: 20110524
  Receipt Date: 20110127
  Transmission Date: 20111010
  Serious: No
  Sender: FDA-Public Use
  Company Number: 023654

PATIENT
  Sex: Female

DRUGS (1)
  1. CIMZIA [Suspect]
     Indication: CROHN'S DISEASE
     Dosage: (SUBCUTANEOUS)
     Route: 058
     Dates: start: 20101007

REACTIONS (7)
  - ADVERSE EVENT [None]
  - TOOTH INFECTION [None]
  - ABDOMINAL PAIN [None]
  - PAIN [None]
  - CONSTIPATION [None]
  - FATIGUE [None]
  - THERAPEUTIC RESPONSE DECREASED [None]
